FAERS Safety Report 12565859 (Version 3)
Quarter: 2019Q4

REPORT INFORMATION
  Report Type: Spontaneous
  Country: US (occurrence: US)
  Receive Date: 20160718
  Receipt Date: 20191105
  Transmission Date: 20200122
  Serious: Yes (Other)
  Sender: FDA-Public Use
  Company Number: US-PFIZER INC-2016346191

PATIENT
  Age: 40 Year
  Sex: Male

DRUGS (4)
  1. TESTIM [Concomitant]
     Active Substance: TESTOSTERONE
     Indication: BLOOD TESTOSTERONE DECREASED
     Dosage: 1 %, DAILY
     Route: 061
     Dates: start: 2008, end: 2014
  2. VIAGRA [Suspect]
     Active Substance: SILDENAFIL CITRATE
     Indication: BLOOD TESTOSTERONE DECREASED
  3. TESTOSTERONE. [Concomitant]
     Active Substance: TESTOSTERONE
     Indication: BLOOD TESTOSTERONE DECREASED
     Dosage: 0.5 MG, EVERY TWO WEEKS
     Dates: start: 2014
  4. VIAGRA [Suspect]
     Active Substance: SILDENAFIL CITRATE
     Indication: ERECTILE DYSFUNCTION
     Dosage: 50 MG, AS NEEDED (TWO TO THREE TIMES WEEKLY)
     Route: 048
     Dates: start: 20080516, end: 20140725

REACTIONS (3)
  - Metastatic malignant melanoma [Unknown]
  - Malignant melanoma [Unknown]
  - Neoplasm progression [Unknown]

NARRATIVE: CASE EVENT DATE: 2010
